FAERS Safety Report 8954149 (Version 1)
Quarter: 2012Q4

REPORT INFORMATION
  Report Type: 
  Country: US (occurrence: US)
  Receive Date: 20121207
  Receipt Date: 20121207
  Transmission Date: 20130627
  Serious: No
  Sender: FDA-Public Use
  Company Number: US-BAYER-2012-125974

PATIENT
  Age: 58 Year
  Sex: Female
  Weight: 79.37 kg

DRUGS (2)
  1. ALEVE CAPLET/TABLET,MIDOL EXTENDED RELIEF CAPLET [Suspect]
     Indication: MIGRAINE HEADACHE
     Dosage: 2 DF, BID(every 12 hours)
     Route: 048
     Dates: start: 201106, end: 201106
  2. AMLODIPINE [Concomitant]
     Dosage: UNK

REACTIONS (2)
  - Abdominal discomfort [Recovered/Resolved]
  - Overdose [None]
